FAERS Safety Report 4972552-4 (Version None)
Quarter: 2006Q1

REPORT INFORMATION
  Report Type: 
  Country: None (occurrence: None)
  Receive Date: 20060216
  Receipt Date: 20060117
  Transmission Date: 20060701
  Serious: No
  Sender: FDA-Public Use
  Company Number: TPA2006A00085

PATIENT
  Sex: 0

DRUGS (2)
  1. ROZEREM [Suspect]
     Dosage: 24 MG, QHS, PER ORAL
     Route: 048
  2. SEVERAL UNKNOWN MEDICATIONS (ALL OTHER THERAPEUTIC PRODUCTS) [Concomitant]

REACTIONS (2)
  - OVERDOSE [None]
  - TREMOR [None]
